FAERS Safety Report 20086058 (Version 1)
Quarter: 2021Q4

REPORT INFORMATION
  Report Type: Spontaneous
  Country: US (occurrence: US)
  Receive Date: 20211118
  Receipt Date: 20211118
  Transmission Date: 20220303
  Serious: No
  Sender: FDA-Public Use
  Company Number: US-PFIZER INC-2021442559

PATIENT
  Age: 62 Year

DRUGS (1)
  1. CHANTIX [Suspect]
     Active Substance: VARENICLINE TARTRATE
     Dosage: UNK
     Dates: start: 2016

REACTIONS (3)
  - Musculoskeletal disorder [Unknown]
  - Paraesthesia [Unknown]
  - Dysgraphia [Unknown]
